FAERS Safety Report 13748869 (Version 1)
Quarter: 2017Q3

REPORT INFORMATION
  Report Type: Spontaneous
  Country: JP (occurrence: JP)
  Receive Date: 20170713
  Receipt Date: 20170713
  Transmission Date: 20171127
  Serious: Yes (Other)
  Sender: FDA-Public Use
  Company Number: JP-TEVA-2017-JP-002179J

PATIENT
  Age: 73 Year
  Sex: Male

DRUGS (2)
  1. CONSTAN 0.4MG.TABLETS [Suspect]
     Active Substance: ALPRAZOLAM
     Indication: TENSION
     Dosage: 1 DOSAGE FORMS DAILY;
     Route: 048
  2. CONSTAN 0.4MG.TABLETS [Suspect]
     Active Substance: ALPRAZOLAM
     Dosage: 2 DOSAGE FORMS DAILY;
     Route: 048

REACTIONS (4)
  - Glaucoma [Unknown]
  - Gout [Unknown]
  - Drug ineffective [Unknown]
  - Therapeutic response delayed [Unknown]
